FAERS Safety Report 17165808 (Version 1)
Quarter: 2019Q4

REPORT INFORMATION
  Report Type: Spontaneous
  Country: ES (occurrence: ES)
  Receive Date: 20191217
  Receipt Date: 20191217
  Transmission Date: 20200122
  Serious: Yes (Other)
  Sender: FDA-Public Use
  Company Number: ES-B.I. PHARMACEUTICALS,INC./RIDGEFIELD-2019-12-119057

PATIENT
  Age: 63 Year
  Sex: Male
  Weight: 78.5 kg

DRUGS (11)
  1. JARDIANCE [Suspect]
     Active Substance: EMPAGLIFLOZIN
     Indication: DIABETES MELLITUS
     Dosage: 1 COMPRIMIDO CADA DIA 30 COMPRIMIDOS RECUBIERTOS CON
     Route: 065
     Dates: start: 20181121
  2. ALDACTONE [Concomitant]
     Active Substance: SPIRONOLACTONE
     Indication: PRODUCT USED FOR UNKNOWN INDICATION
     Dosage: 1 COMPRIMIDO CADA DIA 20 COMPRIMIDOS RECUBIERTOS PELICULA
     Route: 065
     Dates: start: 20190111
  3. HEMOVAS [Concomitant]
     Indication: PRODUCT USED FOR UNKNOWN INDICATION
     Dosage: 1 COMPRIMIDO CADA 12 HORAS 60 COMPRIMIDOS RECUBIERTOS DE LIBERACION PROLONGADA
     Route: 065
     Dates: start: 20181121
  4. BISOPROLOL [Concomitant]
     Active Substance: BISOPROLOL
     Indication: PRODUCT USED FOR UNKNOWN INDICATION
     Dosage: 1 COMPRIMIDO POR LA MANANA 28 COMPRIMIDOS
     Route: 065
     Dates: start: 20191120
  5. ATORVASTATINA [ATORVASTATIN] [Concomitant]
     Active Substance: ATORVASTATIN
     Indication: PRODUCT USED FOR UNKNOWN INDICATION
     Dosage: 1 COMPRIMIDO CADA DIA 80 MG / 28 COMPRIMIDOS
     Route: 065
     Dates: start: 20190111
  6. FUROSEMIDA CINFA [Concomitant]
     Active Substance: FUROSEMIDE
     Indication: PRODUCT USED FOR UNKNOWN INDICATION
     Dosage: MEDIO COMPRIMIDO CADA DIA
     Route: 065
     Dates: start: 20191120
  7. ABASAGLAR [Concomitant]
     Active Substance: INSULIN GLARGINE
     Indication: DIABETES MELLITUS
     Dosage: 64UI EN EL DESAYUNO (64[IU]/G) 100UNIDADES/ML 5 PLUMAS PRECARGADAS SOLUCION INYECT
     Route: 058
     Dates: start: 20170821
  8. LOSARTAN KRKA [LOSARTAN] [Concomitant]
     Indication: PRODUCT USED FOR UNKNOWN INDICATION
     Dosage: 1 COMPRIMIDO CADA DIA 28 COMPRIMIDOS RECUBIERTOS
     Route: 065
     Dates: start: 20190111
  9. CLOPIDOGREL ALMUS [CLOPIDOGREL] [Concomitant]
     Indication: PRODUCT USED FOR UNKNOWN INDICATION
     Dosage: 1 COMPRIMIDO CADA DIA 75MG 28 COMPRIMIDOS RECUBIERTO CON PELICULA EFG
     Route: 065
     Dates: start: 20190928
  10. PANTOPRAZOL [PANTOPRAZOLE] [Concomitant]
     Active Substance: PANTOPRAZOLE
     Indication: PRODUCT USED FOR UNKNOWN INDICATION
     Dosage: 1 COMPRIMIDO CADA DIA 40 MG / 28 COMPRIMIDOS
     Route: 065
     Dates: start: 20191120
  11. REPAGLINIDA [Concomitant]
     Active Substance: REPAGLINIDE
     Indication: DIABETES MELLITUS
     Dosage: 1 COMPRIMIDO CADA 8 HORAS 2 MG / 90 COMPRIMIDOS DURANTE 180 DIAS
     Route: 065
     Dates: start: 20180323

REACTIONS (3)
  - Infected skin ulcer [Not Recovered/Not Resolved]
  - Pseudomonal skin infection [Not Recovered/Not Resolved]
  - Skin ulcer [Not Recovered/Not Resolved]

NARRATIVE: CASE EVENT DATE: 20190830
